FAERS Safety Report 14853878 (Version 4)
Quarter: 2018Q2

REPORT INFORMATION
  Report Type: Spontaneous
  Country: US (occurrence: US)
  Receive Date: 20180507
  Receipt Date: 20180618
  Transmission Date: 20180711
  Serious: No
  Sender: FDA-Public Use
  Company Number: US-PFIZER INC-2018019049

PATIENT
  Age: 45 Year
  Sex: Male
  Weight: 75 kg

DRUGS (7)
  1. GENOTROPIN [Suspect]
     Active Substance: SOMATROPIN
     Dosage: 1 MG, DAILY
     Route: 058
     Dates: start: 20180503
  2. GENOTROPIN [Suspect]
     Active Substance: SOMATROPIN
     Dosage: 1 MG, DAILY (UNDER THE SKIN EVERY DAY)
     Route: 058
     Dates: start: 201507
  3. GENOTROPIN [Suspect]
     Active Substance: SOMATROPIN
     Dosage: 0.5 MG, 2X/DAY (TAKES TWICE A DAY WITH A TOTAL OF 1.0 MG A DAY)
     Route: 058
     Dates: start: 201507
  4. GENOTROPIN [Suspect]
     Active Substance: SOMATROPIN
     Dosage: 1 MG, DAILY (UNDER THE SKIN EVERY DAY)
     Route: 058
  5. GENOTROPIN [Suspect]
     Active Substance: SOMATROPIN
     Dosage: 1 MG, DAILY (UNDER THE SKIN EVERY DAY)
     Route: 058
     Dates: start: 201507
  6. GENOTROPIN [Suspect]
     Active Substance: SOMATROPIN
     Dosage: 0.5 MG, 2X/DAY (TAKES TWICE A DAY WITH A TOTAL OF 1.0 MG A DAY)
     Route: 058
     Dates: start: 201507
  7. GENOTROPIN [Suspect]
     Active Substance: SOMATROPIN
     Dosage: UNK
     Route: 058
     Dates: end: 201804

REACTIONS (12)
  - Product odour abnormal [Unknown]
  - Diarrhoea [Recovered/Resolved]
  - Decreased appetite [Unknown]
  - Product solubility abnormal [Unknown]
  - Liquid product physical issue [Unknown]
  - Poor quality drug administered [Unknown]
  - Night sweats [Recovering/Resolving]
  - Tremor [Unknown]
  - Device issue [Unknown]
  - Malaise [Not Recovered/Not Resolved]
  - Dysphonia [Unknown]
  - Drug dose omission [Unknown]

NARRATIVE: CASE EVENT DATE: 201804
